FAERS Safety Report 14166971 (Version 1)
Quarter: 2017Q4

REPORT INFORMATION
  Report Type: Spontaneous
  Country: US (occurrence: US)
  Receive Date: 20171107
  Receipt Date: 20171107
  Transmission Date: 20180321
  Serious: No
  Sender: FDA-Public Use
  Company Number: US-BAYER-2017-200515

PATIENT
  Age: 71 Year
  Sex: Male
  Weight: 77 kg

DRUGS (4)
  1. ALEVE [Suspect]
     Active Substance: NAPROXEN SODIUM
     Indication: PAIN
     Dosage: 2 DF, QD
     Route: 048
     Dates: start: 201708
  2. CLARITIN LIQUI-GELS [Suspect]
     Active Substance: LORATADINE
     Indication: NASOPHARYNGITIS
  3. CELEBREX [Concomitant]
     Active Substance: CELECOXIB
     Dosage: UNK
  4. CLARITIN LIQUI-GELS [Suspect]
     Active Substance: LORATADINE
     Indication: HYPERSENSITIVITY
     Dosage: 1 DF, QD
     Route: 048
     Dates: start: 201709

REACTIONS (1)
  - Faeces hard [Not Recovered/Not Resolved]

NARRATIVE: CASE EVENT DATE: 201709
